FAERS Safety Report 16807861 (Version 1)
Quarter: 2019Q3

REPORT INFORMATION
  Report Type: Spontaneous
  Country: HR (occurrence: HR)
  Receive Date: 20190915
  Receipt Date: 20190915
  Transmission Date: 20191005
  Serious: Yes (Hospitalization, Other)
  Sender: FDA-Public Use
  Company Number: PHHY2019HR208085

PATIENT
  Age: 70 Year
  Sex: Male

DRUGS (8)
  1. BISOPROLOL [Suspect]
     Active Substance: BISOPROLOL
     Indication: ATRIAL FIBRILLATION
     Dosage: 5 MG, QD (5 MG, 1X/DAY (1,0,0))
     Route: 065
  2. ACETYLSALICYLIC ACID [Suspect]
     Active Substance: ASPIRIN
     Dosage: 300 MG, UNK
     Route: 065
  3. CLOPIDOGREL [Suspect]
     Active Substance: CLOPIDOGREL BISULFATE
     Indication: ATRIAL FIBRILLATION
     Dosage: 600 MG, UNK
     Route: 065
  4. ACETYLSALICYLIC ACID [Suspect]
     Active Substance: ASPIRIN
     Indication: ATRIAL FIBRILLATION
     Dosage: 100 MG, UNK
     Route: 065
  5. CLOPIDOGREL [Suspect]
     Active Substance: CLOPIDOGREL BISULFATE
     Dosage: 75 MG, QD (75 MG, 1X/DAY (1,0,0))
     Route: 065
     Dates: start: 201808
  6. PERINDOPRIL [Suspect]
     Active Substance: PERINDOPRIL
     Indication: ATRIAL FIBRILLATION
     Dosage: 5 MG, QD (5 MG, 1X/DAY (0,0,1))
     Route: 065
  7. WARFARIN [Suspect]
     Active Substance: WARFARIN
     Indication: INTERNATIONAL NORMALISED RATIO
     Dosage: UNK
     Route: 065
  8. ATORVASTATIN CALCIUM. [Suspect]
     Active Substance: ATORVASTATIN CALCIUM
     Indication: ATRIAL FIBRILLATION
     Dosage: 80 MG, QD (80 MG, 1X/DAY (0,0,1))
     Route: 065
     Dates: start: 201808

REACTIONS (3)
  - Product use in unapproved indication [Unknown]
  - Off label use [Unknown]
  - Duodenal ulcer haemorrhage [Recovered/Resolved]

NARRATIVE: CASE EVENT DATE: 201808
